FAERS Safety Report 9038885 (Version 3)
Quarter: 2014Q3

REPORT INFORMATION
  Report Type: Spontaneous
  Country: US (occurrence: US)
  Receive Date: 20130129
  Receipt Date: 20140821
  Transmission Date: 20150326
  Serious: Yes (Hospitalization, Other)
  Sender: FDA-Public Use
  Company Number: US-009507513-1301USA013262

PATIENT
  Sex: Female
  Weight: 124.26 kg

DRUGS (1)
  1. NUVARING [Suspect]
     Active Substance: ETHINYL ESTRADIOL\ETONOGESTREL
     Indication: CONTRACEPTION
     Dosage: UNK
     Route: 067
     Dates: start: 201002, end: 201101

REACTIONS (10)
  - Maternal exposure before pregnancy [Unknown]
  - Vulvovaginal candidiasis [Unknown]
  - Acrochordon [Unknown]
  - Deep vein thrombosis [Unknown]
  - Foot operation [Unknown]
  - Intervertebral disc protrusion [Unknown]
  - Pulmonary embolism [Unknown]
  - Skin lesion excision [Unknown]
  - Dyspepsia [Unknown]
  - Gastrooesophageal reflux disease [Unknown]

NARRATIVE: CASE EVENT DATE: 2011
